FAERS Safety Report 18694914 (Version 1)
Quarter: 2021Q1

REPORT INFORMATION
  Report Type: Spontaneous
  Country: US (occurrence: US)
  Receive Date: 20210101
  Receipt Date: 20210101
  Transmission Date: 20210419
  Serious: Yes (Disabling, Other)
  Sender: FDA-Public Use
  Company Number: None

PATIENT
  Age: 60 Year
  Sex: Female
  Weight: 64.8 kg

DRUGS (2)
  1. ATENOLOL. [Suspect]
     Active Substance: ATENOLOL
     Indication: MIGRAINE
     Route: 048
  2. ATENOLOL. [Suspect]
     Active Substance: ATENOLOL
     Indication: HYPERTENSION
     Route: 048

REACTIONS (17)
  - Cough [None]
  - Chest discomfort [None]
  - Weight increased [None]
  - Heart rate decreased [None]
  - Fatigue [None]
  - Peripheral coldness [None]
  - Night sweats [None]
  - Wheezing [None]
  - Affective disorder [None]
  - Anxiety [None]
  - Cardiac disorder [None]
  - Chest pain [None]
  - Migraine [None]
  - Vertigo [None]
  - Depression [None]
  - Bronchial disorder [None]
  - Asthenia [None]
